FAERS Safety Report 4353132-0 (Version None)
Quarter: 2004Q2

REPORT INFORMATION
  Report Type: 
  Country: None (occurrence: None)
  Receive Date: 20040430
  Receipt Date: 20040212
  Transmission Date: 20050107
  Serious: No
  Sender: FDA-Public Use
  Company Number: 204710

PATIENT
  Age: 49 Year
  Sex: Female

DRUGS (8)
  1. XOLAIR [Suspect]
     Indication: BRONCHOPULMONARY ASPERGILLOSIS ALLERGIC
     Dosage: 350 MG, Q2W SUBCUTANEOUS
     Route: 058
     Dates: start: 20030924, end: 20031027
  2. ADVAIR DISKUS [Concomitant]
  3. SINGULAIR [Concomitant]
  4. ALBUTEROL (ALBUTEROL ALBUTEROL SULFATE) [Concomitant]
  5. ZYRTEC [Concomitant]
  6. CARDIZEM [Concomitant]
  7. SPORANOX [Concomitant]
  8. DYAZIDE (HYDROHCLOROTHIAZIDE TRIAMTERENE) [Concomitant]

REACTIONS (2)
  - ARTHRALGIA [None]
  - MYALGIA [None]
